FAERS Safety Report 25078850 (Version 1)
Quarter: 2025Q1

REPORT INFORMATION
  Report Type: Spontaneous
  Country: US (occurrence: US)
  Receive Date: 20250314
  Receipt Date: 20250314
  Transmission Date: 20250409
  Serious: Yes (Hospitalization, Other)
  Sender: COOPERSURGICAL
  Company Number: US-COOPERSURGICAL, INC.-2025CPS001783

PATIENT
  Sex: Female
  Weight: 80.726 kg

DRUGS (1)
  1. PARAGARD T 380A [Suspect]
     Active Substance: COPPER
     Indication: Contraception
     Route: 015
     Dates: start: 20140101

REACTIONS (16)
  - Uterine cervical laceration [Unknown]
  - Medical procedure [Recovered/Resolved]
  - Device breakage [Recovered/Resolved]
  - Foreign body in reproductive tract [Recovered/Resolved]
  - Complication of device removal [Recovered/Resolved]
  - Embedded device [Recovered/Resolved]
  - Abortion spontaneous [Recovered/Resolved]
  - Infection [Unknown]
  - Procedural haemorrhage [Recovered/Resolved]
  - Post-traumatic stress disorder [Unknown]
  - Emotional distress [Unknown]
  - Depression [Unknown]
  - Anxiety [Unknown]
  - Pain [Recovered/Resolved]
  - Abnormal uterine bleeding [Recovered/Resolved]
  - Dyspareunia [Unknown]

NARRATIVE: CASE EVENT DATE: 20140101
